FAERS Safety Report 6541264-8 (Version None)
Quarter: 2010Q1

REPORT INFORMATION
  Report Type: 
  Country: None (occurrence: None)
  Receive Date: 20100118
  Receipt Date: 20100108
  Transmission Date: 20100710
  Serious: No
  Sender: FDA-Public Use
  Company Number: US-B.I. PHARMACEUTICALS,INC./RIDGEFIELD-2010-BP-00258BP

PATIENT
  Age: 83 Year
  Sex: Male

DRUGS (1)
  1. FLOMAX [Suspect]
     Dosage: 0.8 MG
     Route: 048

REACTIONS (3)
  - INCONTINENCE [None]
  - MICTURITION URGENCY [None]
  - NOCTURIA [None]
